FAERS Safety Report 18036008 (Version 1)
Quarter: 2020Q3

REPORT INFORMATION
  Report Type: Spontaneous
  Country: US (occurrence: US)
  Receive Date: 20200716
  Receipt Date: 20200716
  Transmission Date: 20201103
  Serious: Yes (Hospitalization)
  Sender: FDA-Public Use
  Company Number: None

PATIENT
  Age: 32 Year
  Sex: Male
  Weight: 80.29 kg

DRUGS (1)
  1. CLOZAPINE (CLOZAPINE 100MG TAB) [Suspect]
     Active Substance: CLOZAPINE
     Indication: SCHIZOPHRENIA
     Dates: start: 20200123, end: 20200210

REACTIONS (1)
  - Pericarditis [None]

NARRATIVE: CASE EVENT DATE: 20200207
